FAERS Safety Report 10476491 (Version 1)
Quarter: 2014Q3

REPORT INFORMATION
  Report Type: Spontaneous
  Country: CN (occurrence: CN)
  Receive Date: 20140925
  Receipt Date: 20140925
  Transmission Date: 20150326
  Serious: Yes (Hospitalization)
  Sender: FDA-Public Use
  Company Number: CN-GLAXOSMITHKLINE-B1025552A

PATIENT
  Age: 63 Year
  Sex: Female

DRUGS (2)
  1. LAPATINIB DITOSYLATE [Suspect]
     Active Substance: LAPATINIB DITOSYLATE
     Indication: BREAST CANCER
     Dosage: 1250MG PER DAY
     Route: 048
     Dates: start: 20140411, end: 2014
  2. XELODA [Concomitant]
     Active Substance: CAPECITABINE
     Indication: BREAST CANCER
     Route: 048

REACTIONS (4)
  - Nail disorder [Unknown]
  - Paronychia [Recovered/Resolved]
  - Nail disorder [Unknown]
  - Onychomadesis [Unknown]

NARRATIVE: CASE EVENT DATE: 2014
